FAERS Safety Report 10236152 (Version 2)
Quarter: 2014Q2

REPORT INFORMATION
  Report Type: Spontaneous
  Country: US (occurrence: None)
  Receive Date: 20140611
  Receipt Date: 20140613
  Transmission Date: 20141212
  Serious: Yes (Other)
  Sender: FDA-Public Use
  Company Number: ADR-2014-00439

PATIENT
  Age: 57 Year
  Sex: Female

DRUGS (28)
  1. LIORESAL INTRATHECAL [Suspect]
     Indication: MUSCLE SPASTICITY
  2. LORATADINE [Suspect]
     Route: 048
  3. FLUCONAZOLE [Suspect]
     Route: 048
  4. ARMODAFINIL [Suspect]
  5. ASPIRIN 81 MG [Suspect]
     Dosage: CHEW
     Route: 048
  6. B COMPLEX VITAMINS [Suspect]
  7. ACETAMINOPHEN-CODEINE [Suspect]
     Indication: PAIN
  8. DIMETHYL FUMARATE (TECFIDERA) 120 MG CPDR [Suspect]
     Route: 048
  9. CLOTRIMAZOLE [Suspect]
     Dosage: 1 APPLICATORFUL
     Route: 067
  10. METOCLOPRAMIDE (REGLAN) 10 MG [Suspect]
     Dosage: AS NEEDED
     Route: 048
  11. OXYCODONE [Suspect]
     Indication: PAIN
     Dosage: AS NEEDED
     Route: 048
  12. SUMATRIPTAN [Suspect]
     Indication: MIGRAINE
     Dosage: AS NEEDED
     Route: 048
  13. LAMOTRIGINE [Suspect]
     Route: 048
  14. NABUMETONE [Suspect]
     Route: 048
  15. ERGOCALCIFEROL [Suspect]
     Route: 048
  16. POTASSIUM CHLORIDE CR [Suspect]
     Indication: STEROID THERAPY
     Route: 048
  17. RANITIDINE (ZANTAC 150 MAX STRENGTH) 150 MG [Suspect]
     Dosage: WITH STEROIDS
     Route: 048
  18. ZOLPIDEM (AMBIEN) 10 MG [Suspect]
     Dosage: NIGHTLY FOR SLEEP WHILE ON STEROIDS.
     Route: 048
  19. MOMETASONE [Suspect]
     Route: 045
  20. FUROSEMIDE [Suspect]
     Indication: SWELLING
     Dosage: 0.5-1.5 TABS
     Route: 048
  21. MIRABEGRON ER [Suspect]
     Route: 048
  22. PAROXETINE [Suspect]
     Dosage: NIGHTLY
     Route: 048
  23. ACETAMINOPHEN (TYLENOL EX) 500 MG TABS [Suspect]
     Indication: ARTHRITIS
     Route: 048
  24. ACETAMINOPHEN (TYLENOL EX) 500 MG TABS [Suspect]
     Indication: PAIN
     Route: 048
  25. STAY AWAKE [Suspect]
     Indication: PRODUCT USED FOR UNKNOWN INDICATION
     Dosage: FOR DRIVING
     Route: 048
  26. CALCIUM-VITAMIN D (CALCIUM 600+D) 600-400 MG-UNIT TABS. [Suspect]
     Indication: FUNCTIONAL GASTROINTESTINAL DISORDER
     Dosage: 1-2 CAPS
     Route: 048
  27. MULTIVITAMIN [Suspect]
     Route: 048
  28. NITROFURANTOIN MACROCRYSTAL [Suspect]
     Route: 048

REACTIONS (16)
  - Incorrect route of drug administration [None]
  - Urinary tract infection [None]
  - Implant site extravasation [None]
  - Rectal prolapse [None]
  - Vitamin B6 deficiency [None]
  - Plicated tongue [None]
  - Muscle spasms [None]
  - Convulsion [None]
  - Spinal compression fracture [None]
  - Osteoporosis [None]
  - Muscle spasticity [None]
  - Restless legs syndrome [None]
  - Rotator cuff syndrome [None]
  - Narcolepsy [None]
  - Rosacea [None]
  - Hypercholesterolaemia [None]
